FAERS Safety Report 14554450 (Version 1)
Quarter: 2018Q1

REPORT INFORMATION
  Report Type: Spontaneous
  Country: US (occurrence: US)
  Receive Date: 20180218
  Receipt Date: 20180218
  Transmission Date: 20180509
  Serious: Yes (Disabling)
  Sender: FDA-Public Use
  Company Number: None

PATIENT
  Age: 75 Year
  Sex: Female
  Weight: 69.75 kg

DRUGS (5)
  1. MULTIVITAMIN [Concomitant]
     Active Substance: VITAMINS
  2. LUETIN [Concomitant]
  3. ATORVSTATIN CALCIUM [Suspect]
     Active Substance: ATORVASTATIN CALCIUM
     Indication: BLOOD CHOLESTEROL INCREASED
     Dates: start: 20150601, end: 20170130
  4. VITAMIN A [Concomitant]
     Active Substance: VITAMIN A
  5. FLAXSEED [Concomitant]
     Active Substance: FLAX SEED

REACTIONS (10)
  - Muscular weakness [None]
  - Arrhythmia [None]
  - Fatigue [None]
  - Asthenia [None]
  - Dyspnoea [None]
  - Cardiac flutter [None]
  - Palpitations [None]
  - Muscle spasms [None]
  - Dizziness [None]
  - Insomnia [None]

NARRATIVE: CASE EVENT DATE: 20170105
